FAERS Safety Report 17116213 (Version 4)
Quarter: 2020Q1

REPORT INFORMATION
  Report Type: Report from Study
  Country: None (occurrence: DE)
  Receive Date: 20191205
  Receipt Date: 20200113
  Transmission Date: 20200409
  Serious: Yes (Hospitalization)
  Sender: FDA-Public Use
  Company Number: DE-ABBVIE-19P-062-3177839-00

PATIENT
  Age: 84 Year
  Sex: Male
  Weight: 73 kg

DRUGS (18)
  1. ATORVASTATIN HEMICALCIUM [Concomitant]
     Indication: HYPERCHOLESTEROLAEMIA
  2. TRAMAL LONG [Concomitant]
     Active Substance: TRAMADOL
     Indication: PROCEDURAL PAIN
     Route: 048
     Dates: start: 20180101
  3. VIGANTOL [Concomitant]
     Indication: VITAMIN D DECREASED
     Route: 048
     Dates: start: 20180101
  4. VITAMIN B12 [Concomitant]
     Active Substance: CYANOCOBALAMIN
     Indication: VITAMIN SUPPLEMENTATION
     Dosage: AMPULLA
     Route: 048
     Dates: start: 20181024
  5. AMPICILLIN PLUS [Concomitant]
     Indication: PRODUCT USED FOR UNKNOWN INDICATION
     Dosage: 2126 MG / 1094 MG?7H-15H-23H
     Route: 058
  6. ASPIRIN. [Concomitant]
     Active Substance: ASPIRIN
     Indication: CEREBROVASCULAR DISORDER
     Route: 048
     Dates: start: 20180101
  7. ATORVASTATIN HEMICALCIUM [Concomitant]
     Indication: LIPID METABOLISM DISORDER
     Route: 048
     Dates: start: 20180101
  8. SKYRIZI [Suspect]
     Active Substance: RISANKIZUMAB-RZAA
     Indication: PSORIASIS
     Route: 058
     Dates: start: 20190806, end: 20191129
  9. SKYRIZI [Suspect]
     Active Substance: RISANKIZUMAB-RZAA
     Indication: PSORIATIC ARTHROPATHY
  10. TAMSULOSIN BETA [Concomitant]
     Indication: BENIGN PROSTATIC HYPERPLASIA
     Route: 048
     Dates: start: 20180101
  11. PANTOPRAZOL ABZ [Concomitant]
     Active Substance: PANTOPRAZOLE SODIUM
     Indication: PROPHYLAXIS
     Dosage: 1 DAILY, AS NEEDED
     Route: 048
     Dates: start: 20191001
  12. COTRIM [Concomitant]
     Active Substance: SULFAMETHOXAZOLE\TRIMETHOPRIM
     Indication: PRODUCT USED FOR UNKNOWN INDICATION
     Route: 048
     Dates: start: 20181024, end: 201812
  13. ENALAPRIL MALEATE. [Concomitant]
     Active Substance: ENALAPRIL MALEATE
     Indication: HYPERTENSION
     Route: 048
     Dates: start: 20180101
  14. TRAMAL LONG [Concomitant]
     Active Substance: TRAMADOL
     Indication: PROCEDURAL PAIN
  15. SKYRIZI [Suspect]
     Active Substance: RISANKIZUMAB-RZAA
     Indication: PSORIASIS
     Route: 058
     Dates: start: 20191220
  16. ASPIRIN. [Concomitant]
     Active Substance: ASPIRIN
     Indication: ANTICOAGULANT THERAPY
  17. METAMIZOLE NATRIUM [Concomitant]
     Indication: PROCEDURAL PAIN
     Route: 048
     Dates: start: 20181024
  18. LERCANIDIPINE HCL [Concomitant]
     Active Substance: LERCANIDIPINE HYDROCHLORIDE
     Indication: HYPERTENSION
     Route: 048

REACTIONS (5)
  - Wound secretion [Recovered/Resolved]
  - Propionibacterium infection [Recovered/Resolved]
  - Staphylococcal infection [Recovered/Resolved]
  - Device related infection [Recovered/Resolved]
  - Medical device site fistula [Recovered/Resolved]

NARRATIVE: CASE EVENT DATE: 201909
